FAERS Safety Report 25282043 (Version 2)
Quarter: 2025Q2

REPORT INFORMATION
  Report Type: Spontaneous
  Country: CN (occurrence: CN)
  Receive Date: 20250508
  Receipt Date: 20250513
  Transmission Date: 20250716
  Serious: Yes (Other)
  Sender: ASTELLAS
  Company Number: CN-ASTELLAS-2025-AER-024725

PATIENT
  Age: 57 Year
  Sex: Male
  Weight: 60.0 kg

DRUGS (1)
  1. ISAVUCONAZOLE [Suspect]
     Active Substance: ISAVUCONAZOLE
     Indication: Pneumonia
     Dosage: 200 MILLIGRAM, TID
     Route: 042
     Dates: start: 20250416, end: 20250417

REACTIONS (6)
  - Altered state of consciousness [Recovering/Resolving]
  - Blood pressure increased [Recovering/Resolving]
  - Oxygen saturation decreased [Recovering/Resolving]
  - Photophobia [Recovering/Resolving]
  - Tachycardia [Recovering/Resolving]
  - Off label use [Unknown]

NARRATIVE: CASE EVENT DATE: 20250416
